FAERS Safety Report 7639551 (Version 4)
Quarter: 2019Q1

REPORT INFORMATION
  Report Type: Spontaneous
  Country: NL (occurrence: NL)
  Receive Date: 20101025
  Receipt Date: 20190228
  Transmission Date: 20190418
  Serious: Yes (Death, Other)
  Sender: FDA-Public Use
  Company Number: NL-B.I. PHARMACEUTICALS,INC./RIDGEFIELD-2010-NL-00450NL

PATIENT
  Age: 78 Year
  Sex: Female

DRUGS (6)
  1. SIMVASTATINE [Concomitant]
     Active Substance: SIMVASTATIN
     Indication: PRODUCT USED FOR UNKNOWN INDICATION
     Dosage: 40 MG 1DD?SIMVASTATINE; WEET NIET
     Route: 065
     Dates: end: 20101012
  2. FERROFUMARAAT [Concomitant]
     Indication: PRODUCT USED FOR UNKNOWN INDICATION
     Dosage: 200 MG 3DD FERROFUMARAAT; WEET NIET
     Route: 065
     Dates: start: 20101008, end: 20101012
  3. PANTOZOL [Concomitant]
     Active Substance: PANTOPRAZOLE SODIUM
     Indication: PRODUCT USED FOR UNKNOWN INDICATION
     Dosage: 40 MG 1DD PANTOZOL; WEET NIET
     Route: 065
     Dates: end: 20101012
  4. PRADAXA [Suspect]
     Active Substance: DABIGATRAN ETEXILATE MESYLATE
     Indication: PROPHYLAXIS
     Dosage: 150 MG 1DD
     Route: 065
     Dates: start: 20100927, end: 20101008
  5. DICLOFENAC [Concomitant]
     Active Substance: DICLOFENAC
     Indication: PRODUCT USED FOR UNKNOWN INDICATION
     Dosage: 50 MG 3DD?DICLOFENAC (ANTI-INFLAMMATOIRE EN ANTIREUMATISCHE MIDDELEN); WEET NIET
     Route: 065
     Dates: start: 201009, end: 20101012
  6. FRAXIPARINE [Concomitant]
     Active Substance: NADROPARIN CALCIUM
     Indication: PROPHYLAXIS
     Dosage: 9500 IE
     Route: 065
     Dates: start: 20101008

REACTIONS (2)
  - Cerebral infarction [Fatal]
  - Thrombocytopenia [Not Recovered/Not Resolved]

NARRATIVE: CASE EVENT DATE: 20101008
